FAERS Safety Report 6709767-0 (Version None)
Quarter: 2010Q2

REPORT INFORMATION
  Report Type: 
  Country: None (occurrence: None)
  Receive Date: 20100504
  Receipt Date: 20100419
  Transmission Date: 20101027
  Serious: Yes (Disabling)
  Sender: FDA-Public Use
  Company Number: US-ROCHE-700778

PATIENT
  Sex: Male
  Weight: 83.5 kg

DRUGS (1)
  1. AVASTIN [Suspect]
     Dosage: DOSE REPORTED AS: 1350.
     Route: 042
     Dates: start: 20090216, end: 20100405

REACTIONS (1)
  - VISUAL IMPAIRMENT [None]
